FAERS Safety Report 24282383 (Version 1)
Quarter: 2024Q3

REPORT INFORMATION
  Report Type: Spontaneous
  Country: PT (occurrence: PT)
  Receive Date: 20240904
  Receipt Date: 20240904
  Transmission Date: 20241016
  Serious: Yes (Other)
  Sender: KYOWA
  Company Number: PT-KYOWAKIRIN-2024KK020511

PATIENT

DRUGS (1)
  1. POTELIGEO [Suspect]
     Active Substance: MOGAMULIZUMAB-KPKC
     Indication: Cutaneous T-cell lymphoma
     Dosage: 1 MG/KG I.V. (FIRST CYCLE ON D1, D8, D15 AND D22)
     Route: 042

REACTIONS (2)
  - Autoimmune haemolytic anaemia [Unknown]
  - T-lymphocyte count decreased [Unknown]
